FAERS Safety Report 21336781 (Version 1)
Quarter: 2022Q3

REPORT INFORMATION
  Report Type: Spontaneous
  Country: US (occurrence: US)
  Receive Date: 20220915
  Receipt Date: 20220915
  Transmission Date: 20221026
  Serious: Yes (Other)
  Sender: FDA-Public Use
  Company Number: US-BAYER-2022A128305

PATIENT
  Sex: Female

DRUGS (1)
  1. MIRENA [Suspect]
     Active Substance: LEVONORGESTREL
     Dosage: 20?G/DAY
     Route: 015
     Dates: start: 202110

REACTIONS (5)
  - Genital haemorrhage [None]
  - Vaginal haemorrhage [None]
  - Ovarian cyst [None]
  - Pain in extremity [None]
  - Acne [None]

NARRATIVE: CASE EVENT DATE: 20220913
